FAERS Safety Report 9705418 (Version 1)
Quarter: 2013Q4

REPORT INFORMATION
  Report Type: Spontaneous
  Country: US (occurrence: US)
  Receive Date: 20131122
  Receipt Date: 20131122
  Transmission Date: 20140711
  Serious: Yes (Other)
  Sender: FDA-Public Use
  Company Number: US-009507513-1311USA007819

PATIENT
  Age: 3 Year
  Sex: Male

DRUGS (2)
  1. SINGULAIR [Suspect]
     Indication: ASTHMA
     Route: 048
  2. ALBUTEROL [Concomitant]
     Indication: ASTHMA
     Route: 065

REACTIONS (8)
  - Cough [Unknown]
  - Diarrhoea [Unknown]
  - Eczema [Unknown]
  - Hypersensitivity [Unknown]
  - Pyrexia [Unknown]
  - Rhinorrhoea [Unknown]
  - Throat tightness [Unknown]
  - Urticaria [Unknown]
